FAERS Safety Report 4875716-3 (Version None)
Quarter: 2006Q1

REPORT INFORMATION
  Report Type: 
  Country: None (occurrence: None)
  Receive Date: 20060105
  Receipt Date: 20051220
  Transmission Date: 20060701
  Serious: Yes (Other)
  Sender: FDA-Public Use
  Company Number: GB-YAMANOUCHI-YEHQ20051443

PATIENT
  Age: 50 Year
  Sex: Male

DRUGS (1)
  1. VESICARE [Suspect]
     Indication: HYPERTONIC BLADDER
     Dates: start: 20050101, end: 20050101

REACTIONS (1)
  - LICHEN PLANUS [None]
